FAERS Safety Report 19259536 (Version 2)
Quarter: 2021Q2

REPORT INFORMATION
  Report Type: Spontaneous
  Country: NL (occurrence: NL)
  Receive Date: 20210514
  Receipt Date: 20210521
  Transmission Date: 20210717
  Serious: Yes (Hospitalization, Other)
  Sender: FDA-Public Use
  Company Number: NL-PFIZER INC-2021496804

PATIENT
  Age: 74 Year
  Sex: Male
  Weight: 110 kg

DRUGS (10)
  1. ISOSORBIDEMONONITRAAT [Concomitant]
     Dosage: MODIFIED?RELEASE CAPSULE, 50MG
  2. DOXAZOSIN MESILATE [Suspect]
     Active Substance: DOXAZOSIN MESYLATE
     Indication: HYPERTENSION
     Dosage: 2 TIMES DAY 1
     Dates: start: 201506, end: 20210406
  3. ROSUVASTATINE [ROSUVASTATIN] [Concomitant]
     Active Substance: ROSUVASTATIN
     Dosage: TABLET, 20 MG
  4. IRBESARTAN. [Concomitant]
     Active Substance: IRBESARTAN
     Dosage: 75 MG 2 PER DAY
  5. COMIRNATY [Suspect]
     Active Substance: TOZINAMERAN
     Indication: COVID-19 IMMUNISATION
     Dosage: 1ST DOSE, SINGLE
     Route: 030
     Dates: start: 20210405, end: 20210405
  6. AMIODARONE [Concomitant]
     Active Substance: AMIODARONE
     Dosage: 200MG 1 TIME PER DAY 0.5 TABLET
  7. EDOXABAN [Concomitant]
     Active Substance: EDOXABAN TOSYLATE
     Dosage: 60 MG
  8. PARACETAMOL [Concomitant]
     Active Substance: ACETAMINOPHEN
     Dosage: 500MG 4 PEY DAY 2
  9. SPIRONOLACTON [Concomitant]
     Active Substance: SPIRONOLACTONE
     Dosage: 12.5 MG 2 PER DAY1
  10. PANTOPRAZOLE [Concomitant]
     Active Substance: PANTOPRAZOLE
     Dosage: 40 MG

REACTIONS (10)
  - Hypotension [Unknown]
  - Thrombocytopenia [Unknown]
  - Cough [Unknown]
  - Chills [Recovered/Resolved]
  - Vomiting [Unknown]
  - Acute coronary syndrome [Recovering/Resolving]
  - Dyspnoea [Unknown]
  - Pyrexia [Recovering/Resolving]
  - Pneumonia [Recovering/Resolving]
  - Chest discomfort [Unknown]

NARRATIVE: CASE EVENT DATE: 202104
